FAERS Safety Report 16966304 (Version 2)
Quarter: 2019Q4

REPORT INFORMATION
  Report Type: Spontaneous
  Country: US (occurrence: US)
  Receive Date: 20191028
  Receipt Date: 20191111
  Transmission Date: 20200122
  Serious: No
  Sender: FDA-Public Use
  Company Number: US-AMGEN-USASP2019176945

PATIENT
  Age: 62 Year
  Sex: Male

DRUGS (7)
  1. EMEND [FOSAPREPITANT MEGLUMINE] [Concomitant]
     Dosage: 150 MILLIGRAM
     Route: 042
  2. TAXOTERE [Concomitant]
     Active Substance: DOCETAXEL
     Dosage: 135 MILLIGRAM
     Route: 042
  3. PNEUMOVAX II [Concomitant]
     Active Substance: PNEUMOCOCCAL VACCINE POLYVALENT
     Dosage: UNK
     Route: 058
     Dates: start: 20190123
  4. ZOFRAN [Concomitant]
     Active Substance: ONDANSETRON HYDROCHLORIDE
     Dosage: 16 MILLIGRAM
     Route: 042
  5. NEULASTA [Suspect]
     Active Substance: PEGFILGRASTIM
     Indication: PRODUCT USED FOR UNKNOWN INDICATION
     Dosage: 6 MILLIGRAM
     Route: 065
     Dates: start: 2019
  6. DECADRON [Concomitant]
     Active Substance: DEXAMETHASONE
     Dosage: 10 MILLIGRAM
     Route: 042
  7. PARAPLATIN [Concomitant]
     Active Substance: CARBOPLATIN
     Dosage: 600 MILLIGRAM
     Route: 042

REACTIONS (1)
  - Drug delivery system malfunction [Unknown]

NARRATIVE: CASE EVENT DATE: 20191009
